FAERS Safety Report 8181248-X (Version None)
Quarter: 2012Q1

REPORT INFORMATION
  Report Type: 
  Country: None (occurrence: None)
  Receive Date: 20120302
  Receipt Date: 20120227
  Transmission Date: 20120608
  Serious: Yes (Other)
  Sender: FDA-Public Use
  Company Number: US-BAYER-2011-030538

PATIENT
  Age: 54 Year
  Sex: Female
  Weight: 72.562 kg

DRUGS (6)
  1. XANAX [Concomitant]
  2. VICODIN [Concomitant]
  3. IMITREX [Concomitant]
  4. CRESTOR [Concomitant]
  5. TOPAMAX [Concomitant]
  6. MAGNEVIST [Suspect]
     Indication: NUCLEAR MAGNETIC RESONANCE IMAGING BRAIN
     Dosage: 16 ML,  LEFT ARM
     Route: 042
     Dates: start: 20110405, end: 20110405

REACTIONS (8)
  - DYSPNOEA [None]
  - PARAESTHESIA ORAL [None]
  - UNEVALUABLE EVENT [None]
  - HYPERSENSITIVITY [None]
  - PARAESTHESIA MUCOSAL [None]
  - LIP SWELLING [None]
  - THROAT TIGHTNESS [None]
  - SWOLLEN TONGUE [None]
